FAERS Safety Report 4885872-9 (Version None)
Quarter: 2006Q1

REPORT INFORMATION
  Report Type: 
  Country: None (occurrence: None)
  Receive Date: 20060120
  Receipt Date: 20050907
  Transmission Date: 20060701
  Serious: Yes (Disabling)
  Sender: FDA-Public Use
  Company Number: AU-ABBOTT-05P-008-0310585-00

PATIENT
  Age: 43 Year
  Sex: Male

DRUGS (5)
  1. RITONAVIR [Interacting]
     Indication: HIV INFECTION
  2. FLUTICASONE PROPIONATE [Interacting]
     Indication: DRUG USE FOR UNKNOWN INDICATION
     Route: 055
  3. KETOCONAZOLE [Suspect]
     Indication: ONYCHOMYCOSIS
     Dosage: NOT REPORTED
  4. ATAZANAVIR [Concomitant]
     Indication: HIV INFECTION
     Dosage: NOT REPORTED
  5. NEVIRAPINE [Concomitant]
     Indication: HIV INFECTION
     Dosage: NOT REPORTED

REACTIONS (13)
  - ACNE [None]
  - ADRENAL SUPPRESSION [None]
  - ANOREXIA [None]
  - ARTHRALGIA [None]
  - BLOOD CORTISOL DECREASED [None]
  - BLOOD PRESSURE ORTHOSTATIC DECREASED [None]
  - CUSHING'S SYNDROME [None]
  - DRUG INTERACTION [None]
  - DRUG WITHDRAWAL SYNDROME [None]
  - FATIGUE [None]
  - MYALGIA [None]
  - OSTEOPOROSIS [None]
  - WEIGHT DECREASED [None]
